FAERS Safety Report 21392651 (Version 1)
Quarter: 2022Q3

REPORT INFORMATION
  Report Type: Spontaneous
  Country: US (occurrence: US)
  Receive Date: 20220929
  Receipt Date: 20220929
  Transmission Date: 20221026
  Serious: No
  Sender: FDA-Public Use
  Company Number: US-ORGANON-O2209USA002063

PATIENT
  Age: 84 Year
  Sex: Male

DRUGS (1)
  1. FOSAMAX [Suspect]
     Active Substance: ALENDRONATE SODIUM
     Dosage: 70MG ONCE WEEKLY
     Route: 048
     Dates: start: 201306

REACTIONS (1)
  - Inappropriate schedule of product administration [Unknown]
